FAERS Safety Report 9253361 (Version 2)
Quarter: 2013Q2

REPORT INFORMATION
  Report Type: Spontaneous
  Country: CA (occurrence: CA)
  Receive Date: 20130425
  Receipt Date: 20130509
  Transmission Date: 20140414
  Serious: Yes (Hospitalization, Other)
  Sender: FDA-Public Use
  Company Number: CA-AMGEN-CANSP2013027799

PATIENT
  Age: 68 Year
  Sex: Female

DRUGS (2)
  1. ENBREL [Suspect]
     Indication: RHEUMATOID ARTHRITIS
     Dosage: 50 MG, QWK
     Route: 058
     Dates: start: 200609
  2. NOVOMIX [Concomitant]
     Indication: DIABETES MELLITUS
     Dosage: NOVOMIX 30, UNK, UNK
     Route: 058

REACTIONS (4)
  - Renal cancer [Not Recovered/Not Resolved]
  - Arthritis [Unknown]
  - Pain [Unknown]
  - Urinary tract infection [Recovered/Resolved]
